FAERS Safety Report 24749779 (Version 1)
Quarter: 2024Q4

REPORT INFORMATION
  Report Type: Spontaneous
  Country: HR (occurrence: HR)
  Receive Date: 20241218
  Receipt Date: 20241218
  Transmission Date: 20250115
  Serious: Yes (Hospitalization, Other)
  Sender: ABBVIE
  Company Number: HR-ABBVIE-6049337

PATIENT
  Age: 29 Year
  Sex: Female

DRUGS (8)
  1. VENETOCLAX [Suspect]
     Active Substance: VENETOCLAX
     Indication: Chronic lymphocytic leukaemia
     Dosage: 100 MG?START AND END DATE: 2024
     Route: 048
     Dates: start: 20240209, end: 202405
  2. VENETOCLAX [Suspect]
     Active Substance: VENETOCLAX
     Indication: Chronic lymphocytic leukaemia
     Dosage: REDUCED TO 200 MG, AND THEN TO 100 MG?START AND END DATE: 2024
     Route: 048
  3. VENETOCLAX [Suspect]
     Active Substance: VENETOCLAX
     Indication: Chronic lymphocytic leukaemia
     Dosage: AFTER 2 WEEKS OF 100 MG, DOSE WAS INCREASED TO 200 MG?START AND END DATE: 2024
     Route: 048
  4. VENETOCLAX [Suspect]
     Active Substance: VENETOCLAX
     Indication: Chronic lymphocytic leukaemia
     Dosage: AFTER 2 WEEK PAUSE, 100 MG?START AND END DATE: 2024
     Route: 048
  5. VENETOCLAX [Suspect]
     Active Substance: VENETOCLAX
     Indication: Chronic lymphocytic leukaemia
     Dosage: 100 MG, AFTER 3 WEEKS PAUSE?START DATE: 2024
     Route: 048
     Dates: end: 20240716
  6. VENETOCLAX [Suspect]
     Active Substance: VENETOCLAX
     Indication: Chronic lymphocytic leukaemia
     Dosage: 100 MG?START AND END DATE: 2024
     Route: 048
  7. VENETOCLAX [Suspect]
     Active Substance: VENETOCLAX
     Indication: Chronic lymphocytic leukaemia
     Dosage: UP TO 400 MG
     Route: 048
     Dates: start: 20230526
  8. OBINUTUZUMAB [Suspect]
     Active Substance: OBINUTUZUMAB
     Indication: Chronic lymphocytic leukaemia
     Route: 065
     Dates: start: 20230526, end: 20240716

REACTIONS (14)
  - Neutropenia [Unknown]
  - Streptococcal bacteraemia [Unknown]
  - Neutropenia [Unknown]
  - Immunodeficiency common variable [Unknown]
  - Febrile neutropenia [Unknown]
  - Escherichia urinary tract infection [Unknown]
  - Bronchitis [Unknown]
  - Influenza [Unknown]
  - Urinary tract infection [Unknown]
  - Cough [Unknown]
  - Pyrexia [Unknown]
  - Cellulitis [Unknown]
  - Neutropenia [Unknown]
  - Neutropenia [Unknown]

NARRATIVE: CASE EVENT DATE: 20230901
